FAERS Safety Report 7759855-5 (Version None)
Quarter: 2011Q3

REPORT INFORMATION
  Report Type: 
  Country: None (occurrence: None)
  Receive Date: 20110919
  Receipt Date: 20110906
  Transmission Date: 20111222
  Serious: Yes (Hospitalization)
  Sender: FDA-Public Use
  Company Number: US-JNJFOC-20110904626

PATIENT
  Sex: Male
  Weight: 32.21 kg

DRUGS (4)
  1. TYLENOL-500 [Suspect]
     Indication: PYREXIA
     Dates: start: 20091201
  2. CLONIDINE [Concomitant]
  3. TYLENOL-500 [Suspect]
  4. STRATTERA [Concomitant]
     Dosage: START 2 WEEKS PRIOR

REACTIONS (1)
  - STEVENS-JOHNSON SYNDROME [None]
